FAERS Safety Report 24586710 (Version 2)
Quarter: 2025Q3

REPORT INFORMATION
  Report Type: Spontaneous
  Country: EU (occurrence: EU)
  Receive Date: 20241107
  Receipt Date: 20250930
  Transmission Date: 20251020
  Serious: Yes (Death, Life-Threatening, Hospitalization, Other)
  Sender: SANDOZ
  Company Number: EU-PHARMATHEN-GPV2021PHT053591

PATIENT
  Age: 58 Year
  Sex: Male

DRUGS (34)
  1. AMPHOTERICIN B [Suspect]
     Active Substance: AMPHOTERICIN B
     Indication: Bronchopulmonary aspergillosis
     Dosage: 4 MG/KG, QD
     Route: 065
  2. MYCOPHENOLATE MOFETIL [Suspect]
     Active Substance: MYCOPHENOLATE MOFETIL
     Indication: Prophylaxis against transplant rejection
     Dosage: 1000 MG, QD
     Route: 065
  3. MYCOPHENOLATE MOFETIL [Suspect]
     Active Substance: MYCOPHENOLATE MOFETIL
     Indication: Immunosuppressant drug therapy
  4. PREDNISONE [Suspect]
     Active Substance: PREDNISONE
     Indication: Immunosuppressant drug therapy
     Dosage: 12.5 MG, QD
     Route: 065
  5. SULFAMETHOXAZOLE AND TRIMETHOPRIM [Suspect]
     Active Substance: SULFAMETHOXAZOLE\TRIMETHOPRIM
     Indication: Antibiotic therapy
     Route: 065
  6. TACROLIMUS [Suspect]
     Active Substance: TACROLIMUS
     Indication: Prophylaxis against transplant rejection
     Dosage: 8 MG, QD
     Route: 065
  7. TACROLIMUS [Suspect]
     Active Substance: TACROLIMUS
     Indication: Immunosuppressant drug therapy
  8. VORICONAZOLE [Suspect]
     Active Substance: VORICONAZOLE
     Indication: Bronchopulmonary aspergillosis
     Route: 065
  9. VORICONAZOLE [Suspect]
     Active Substance: VORICONAZOLE
     Route: 065
  10. ASPIRIN [Concomitant]
     Active Substance: ASPIRIN
     Indication: Product used for unknown indication
     Route: 065
  11. ASPIRIN [Concomitant]
     Active Substance: ASPIRIN
     Route: 065
  12. ASPIRIN [Concomitant]
     Active Substance: ASPIRIN
     Route: 065
  13. CLOPIDOGREL [Concomitant]
     Active Substance: CLOPIDOGREL BISULFATE
     Indication: Product used for unknown indication
     Route: 065
  14. CLOPIDOGREL [Concomitant]
     Active Substance: CLOPIDOGREL BISULFATE
     Route: 065
  15. CLOPIDOGREL [Concomitant]
     Active Substance: CLOPIDOGREL BISULFATE
     Route: 065
  16. INSULIN GLARGINE [Concomitant]
     Active Substance: INSULIN GLARGINE
     Indication: Diabetes mellitus
     Route: 065
  17. INSULIN GLARGINE [Concomitant]
     Active Substance: INSULIN GLARGINE
     Route: 065
  18. INSULIN GLARGINE [Concomitant]
     Active Substance: INSULIN GLARGINE
     Route: 065
  19. NEBIVOLOL [Concomitant]
     Active Substance: NEBIVOLOL
     Indication: Product used for unknown indication
     Route: 065
  20. NEBIVOLOL [Concomitant]
     Active Substance: NEBIVOLOL
     Route: 065
  21. NEBIVOLOL [Concomitant]
     Active Substance: NEBIVOLOL
     Route: 065
  22. ROSUVASTATIN [Concomitant]
     Active Substance: ROSUVASTATIN
     Indication: Product used for unknown indication
     Route: 065
  23. ROSUVASTATIN [Concomitant]
     Active Substance: ROSUVASTATIN
     Route: 065
  24. ROSUVASTATIN [Concomitant]
     Active Substance: ROSUVASTATIN
     Route: 065
  25. URAPIDIL [Concomitant]
     Active Substance: URAPIDIL
     Indication: Product used for unknown indication
     Route: 065
  26. URAPIDIL [Concomitant]
     Active Substance: URAPIDIL
     Route: 065
  27. URAPIDIL [Concomitant]
     Active Substance: URAPIDIL
     Route: 065
  28. VALGANCICLOVIR [Concomitant]
     Active Substance: VALGANCICLOVIR
     Indication: Product used for unknown indication
     Route: 065
  29. VALGANCICLOVIR [Concomitant]
     Active Substance: VALGANCICLOVIR
     Route: 065
  30. VALGANCICLOVIR [Concomitant]
     Active Substance: VALGANCICLOVIR
     Route: 065
  31. VANCOMYCIN [Concomitant]
     Active Substance: VANCOMYCIN
     Indication: Bronchopulmonary aspergillosis
     Route: 065
     Dates: start: 2018
  32. VANCOMYCIN [Concomitant]
     Active Substance: VANCOMYCIN
     Indication: Staphylococcal infection
     Route: 065
  33. VANCOMYCIN [Concomitant]
     Active Substance: VANCOMYCIN
     Indication: Staphylococcal infection
     Route: 065
     Dates: start: 2018
  34. VANCOMYCIN [Concomitant]
     Active Substance: VANCOMYCIN
     Route: 065
     Dates: start: 2018

REACTIONS (86)
  - Infection [Fatal]
  - Hyponatraemia [Fatal]
  - Acute kidney injury [Fatal]
  - Delirium [Fatal]
  - Staphylococcal bacteraemia [Fatal]
  - Bronchopulmonary aspergillosis [Fatal]
  - Septic shock [Fatal]
  - Fungal endocarditis [Fatal]
  - Cerebral aspergillosis [Fatal]
  - Aspergillus infection [Fatal]
  - Abscess limb [Fatal]
  - Drug ineffective [Fatal]
  - Cerebral aspergillosis [Fatal]
  - Cerebral aspergillosis [Fatal]
  - Cerebral aspergillosis [Fatal]
  - Cerebral aspergillosis [Fatal]
  - Cerebral aspergillosis [Fatal]
  - Cerebral aspergillosis [Fatal]
  - Cerebral aspergillosis [Fatal]
  - Cerebral aspergillosis [Fatal]
  - Septic shock [Fatal]
  - Septic shock [Fatal]
  - Septic shock [Fatal]
  - Septic shock [Fatal]
  - Septic shock [Fatal]
  - Septic shock [Fatal]
  - Septic shock [Fatal]
  - Septic shock [Fatal]
  - Abscess limb [Fatal]
  - Abscess limb [Fatal]
  - Abscess limb [Fatal]
  - Abscess limb [Fatal]
  - Abscess limb [Fatal]
  - Abscess limb [Fatal]
  - Abscess limb [Fatal]
  - Abscess limb [Fatal]
  - Bronchopulmonary aspergillosis [Fatal]
  - Bronchopulmonary aspergillosis [Fatal]
  - Bronchopulmonary aspergillosis [Fatal]
  - Bronchopulmonary aspergillosis [Fatal]
  - Bronchopulmonary aspergillosis [Fatal]
  - Bronchopulmonary aspergillosis [Fatal]
  - Bronchopulmonary aspergillosis [Fatal]
  - Bronchopulmonary aspergillosis [Fatal]
  - Delirium [Fatal]
  - Delirium [Fatal]
  - Delirium [Fatal]
  - Delirium [Fatal]
  - Delirium [Fatal]
  - Delirium [Fatal]
  - Delirium [Fatal]
  - Delirium [Fatal]
  - Aspergillus infection [Fatal]
  - Aspergillus infection [Fatal]
  - Aspergillus infection [Fatal]
  - Aspergillus infection [Fatal]
  - Aspergillus infection [Fatal]
  - Aspergillus infection [Fatal]
  - Aspergillus infection [Fatal]
  - Aspergillus infection [Fatal]
  - Fungal endocarditis [Fatal]
  - Fungal endocarditis [Fatal]
  - Fungal endocarditis [Fatal]
  - Fungal endocarditis [Fatal]
  - Fungal endocarditis [Fatal]
  - Fungal endocarditis [Fatal]
  - Fungal endocarditis [Fatal]
  - Fungal endocarditis [Fatal]
  - Acute kidney injury [Fatal]
  - Acute kidney injury [Fatal]
  - Acute kidney injury [Fatal]
  - Acute kidney injury [Fatal]
  - Acute kidney injury [Fatal]
  - Acute kidney injury [Fatal]
  - Acute kidney injury [Fatal]
  - Acute kidney injury [Fatal]
  - Hyponatraemia [Fatal]
  - Hyponatraemia [Fatal]
  - Hyponatraemia [Fatal]
  - Hyponatraemia [Fatal]
  - Hyponatraemia [Fatal]
  - Hyponatraemia [Fatal]
  - Hyponatraemia [Fatal]
  - Hyponatraemia [Fatal]
  - Disseminated aspergillosis [Fatal]
  - Staphylococcal infection [Unknown]

NARRATIVE: CASE EVENT DATE: 20180101
